FAERS Safety Report 11171973 (Version 1)
Quarter: 2015Q2

REPORT INFORMATION
  Report Type: Spontaneous
  Country: US (occurrence: US)
  Receive Date: 20150608
  Receipt Date: 20150608
  Transmission Date: 20150821
  Serious: No
  Sender: FDA-Public Use
  Company Number: US-TARO-2014TAR00367

PATIENT
  Age: 71 Year
  Sex: Female
  Weight: 49.89 kg

DRUGS (6)
  1. CHILDRENS CETIRIZINE HYDROCHLORIDE SUGAR FREE GRAPE [Suspect]
     Active Substance: CETIRIZINE HYDROCHLORIDE
     Indication: SINUSITIS
     Dosage: UNK UNK, 1X/DAY
     Route: 048
     Dates: start: 20140910
  2. MONTELUKAST [Concomitant]
     Active Substance: MONTELUKAST SODIUM
     Dosage: 10 MG, 1X/DAY
  3. VITAMIN B COMPLEX [Concomitant]
     Active Substance: CYANOCOBALAMIN\DEXPANTHENOL\NIACINAMIDE\PYRIDOXINE HYDROCHLORIDE\RIBOFLAVIN 5^-PHOSPHATE SODIUM\THIAMINE HYDROCHLORIDE\VITAMIN B COMPLEX
     Dosage: UNK, 1X/DAY
  4. CALCIUM [Concomitant]
     Active Substance: CALCIUM
     Dosage: 630 MG, 2X/DAY
  5. ZANTAC [Concomitant]
     Active Substance: RANITIDINE HYDROCHLORIDE
     Dosage: 300 MG, 2X/DAY
  6. VITAMIN D3 [Concomitant]
     Active Substance: CHOLECALCIFEROL
     Dosage: 2000 U, 1X/DAY

REACTIONS (3)
  - Somnolence [Not Recovered/Not Resolved]
  - Dizziness [Not Recovered/Not Resolved]
  - Off label use [Not Recovered/Not Resolved]

NARRATIVE: CASE EVENT DATE: 20140910
